FAERS Safety Report 12579812 (Version 11)
Quarter: 2016Q4

REPORT INFORMATION
  Report Type: Spontaneous
  Country: GB (occurrence: GB)
  Receive Date: 20160721
  Receipt Date: 20161229
  Transmission Date: 20170207
  Serious: Yes (Death, Hospitalization, Other)
  Sender: FDA-Public Use
  Company Number: GB-PFIZER INC-2016349586

PATIENT
  Age: 71 Year
  Sex: Male

DRUGS (23)
  1. LANSOPRAZOLE. [Suspect]
     Active Substance: LANSOPRAZOLE
     Dosage: 30 MG, 1X/DAY
  2. ASPIRIN /00002701/ [Suspect]
     Active Substance: ASPIRIN
     Dosage: 75 MG, DAILY
  3. FOSTAIR [Suspect]
     Active Substance: BECLOMETHASONE\FORMOTEROL
     Dosage: 2 DF, 2X/DAY
  4. GLICLAZIDE [Suspect]
     Active Substance: GLICLAZIDE
     Dosage: 80 MG, DAILY
  5. TAZOCIN [Suspect]
     Active Substance: PIPERACILLIN SODIUM\TAZOBACTAM SODIUM
     Indication: RESPIRATORY FAILURE
     Dosage: 4.5 G, 3X/DAY
     Route: 042
  6. TIOTROPIUM [Suspect]
     Active Substance: TIOTROPIUM
     Dosage: 18 UG, 1X/DAY
  7. SALBUTAMOL [Suspect]
     Active Substance: ALBUTEROL
     Dosage: 5 MG, DAILY
  8. TAZOCIN [Suspect]
     Active Substance: PIPERACILLIN SODIUM\TAZOBACTAM SODIUM
     Indication: CHRONIC OBSTRUCTIVE PULMONARY DISEASE
     Dosage: 4.5 G, 3X/DAY
     Route: 042
  9. TAZOCIN [Suspect]
     Active Substance: PIPERACILLIN SODIUM\TAZOBACTAM SODIUM
     Dosage: 13.5 G, 1X/DAY (QD)
     Route: 042
  10. METFORMIN HCL [Suspect]
     Active Substance: METFORMIN HYDROCHLORIDE
     Dosage: UNK
  11. ITRACONAZOLE. [Suspect]
     Active Substance: ITRACONAZOLE
     Dosage: 200 MG, DAILY
  12. TAMSULOSIN [Suspect]
     Active Substance: TAMSULOSIN
     Dosage: 400 UG, DAILY
  13. PARACETAMOL [Suspect]
     Active Substance: ACETAMINOPHEN
     Dosage: UNK
  14. CARBOCISTEINE [Suspect]
     Active Substance: CARBOCYSTEINE
     Dosage: 750 MG, DAILY
  15. DILTIAZEM HYDROCHLORIDE. [Suspect]
     Active Substance: DILTIAZEM HYDROCHLORIDE
     Dosage: 180 MG, DAILY
  16. PRAVASTATIN. [Suspect]
     Active Substance: PRAVASTATIN
     Dosage: 20 MG, DAILY
  17. COMBIVENT [Suspect]
     Active Substance: ALBUTEROL SULFATE\IPRATROPIUM BROMIDE
     Dosage: 500 MG, 1X/DAY
  18. FERROUS SULFATE. [Suspect]
     Active Substance: FERROUS SULFATE
     Dosage: 200 MG, DAILY
  19. IPRATROPIUM [Suspect]
     Active Substance: IPRATROPIUM
     Dosage: 500 MG, DAILY
  20. LINAGLIPTIN [Suspect]
     Active Substance: LINAGLIPTIN
     Dosage: UNK
  21. TAZOCIN [Suspect]
     Active Substance: PIPERACILLIN SODIUM\TAZOBACTAM SODIUM
     Indication: LOWER RESPIRATORY TRACT INFECTION
     Dosage: 4.5 G, 3X/DAY
     Route: 042
  22. SPIRIVA [Suspect]
     Active Substance: TIOTROPIUM BROMIDE MONOHYDRATE
     Dosage: 18 UG, 1X/DAY
  23. TRAJENTA [Suspect]
     Active Substance: LINAGLIPTIN
     Dosage: 5 MG, 1X/DAY

REACTIONS (3)
  - Dyspnoea [Fatal]
  - Condition aggravated [Fatal]
  - Oxygen saturation decreased [Fatal]

NARRATIVE: CASE EVENT DATE: 20160530
